FAERS Safety Report 4585725-X (Version None)
Quarter: 2005Q1

REPORT INFORMATION
  Report Type: 
  Country: None (occurrence: None)
  Receive Date: 20050214
  Receipt Date: 20041018
  Transmission Date: 20050727
  Serious: Yes (Death, Hospitalization)
  Sender: FDA-Public Use
  Company Number: 05-103

PATIENT
  Age: 66 Year
  Sex: Female

DRUGS (13)
  1. DEXAMETHASONE [Suspect]
     Indication: MYELOMA RECURRENCE
     Dosage: 7 MG/KG/DAY, INTRAVENOUS
     Route: 042
     Dates: start: 20030221, end: 20030303
  2. GENASENSE [Suspect]
     Indication: MYELOMA RECURRENCE
     Dosage: 40 MG/DAY, ORAL
     Route: 048
     Dates: start: 20030218, end: 20030224
  3. TIMOLOL MALEATE [Concomitant]
  4. ACETAMINOPHEN [Concomitant]
  5. FUROSEMIDE [Concomitant]
  6. POTASSIUM SUPPLEMENT [Concomitant]
  7. VITAMIN C [Concomitant]
  8. PROCHLORPERAZINE [Concomitant]
  9. TEMAZEPAM [Concomitant]
  10. LEVOTHYROXINE [Concomitant]
  11. PAMIDRONATE DISODIUM [Concomitant]
  12. TRIMETHOPRIM-SULFAMETHOXAZOLE [Concomitant]
  13. RANITIDINE [Concomitant]

REACTIONS (19)
  - ACTIVATED PARTIAL THROMBOPLASTIN TIME PROLONGED [None]
  - ANAEMIA [None]
  - ANOREXIA [None]
  - BLOOD ALBUMIN DECREASED [None]
  - BONE LESION [None]
  - COAGULOPATHY [None]
  - DEHYDRATION [None]
  - HAEMORRHAGIC CYST [None]
  - HEPATIC CYST [None]
  - HEPATIC ENCEPHALOPATHY [None]
  - HYPERCALCAEMIA [None]
  - HYPERGLYCAEMIA [None]
  - HYPOKALAEMIA [None]
  - MALIGNANT NEOPLASM PROGRESSION [None]
  - MELAENA [None]
  - MOUTH HAEMORRHAGE [None]
  - MULTIPLE MYELOMA [None]
  - PLASMACYTOMA [None]
  - THROMBOCYTOPENIA [None]
